FAERS Safety Report 8380268-X (Version None)
Quarter: 2012Q2

REPORT INFORMATION
  Report Type: 
  Country: None (occurrence: None)
  Receive Date: 20120523
  Receipt Date: 20120521
  Transmission Date: 20120825
  Serious: Yes (Other)
  Sender: FDA-Public Use
  Company Number: PHEH2012US007853

PATIENT
  Sex: Female

DRUGS (1)
  1. MYFORTIC [Suspect]
     Indication: COMPLICATIONS OF TRANSPLANTED KIDNEY
     Dosage: 180 MG, TID
     Route: 048
     Dates: start: 20111216

REACTIONS (2)
  - KIDNEY TRANSPLANT REJECTION [None]
  - RENAL FAILURE [None]
